FAERS Safety Report 23099445 (Version 1)
Quarter: 2023Q4

REPORT INFORMATION
  Report Type: Spontaneous
  Country: IT (occurrence: IT)
  Receive Date: 20231024
  Receipt Date: 20231024
  Transmission Date: 20240110
  Serious: Yes (Other)
  Sender: FDA-Public Use
  Company Number: None

PATIENT
  Age: 71 Year
  Sex: Female

DRUGS (5)
  1. OXALIPLATIN [Suspect]
     Active Substance: OXALIPLATIN
     Indication: Colon cancer
     Dosage: 130 MG (THERAPY START DECEMBER 2022 - 31/01/2023 IV CYCLE - 14/02/2023 V CYCLE - 03/03/2023 VI CYCLE
     Route: 042
     Dates: start: 20230131, end: 20230303
  2. FLUOROURACIL [Suspect]
     Active Substance: FLUOROURACIL
     Indication: Colon cancer
     Dosage: 2900 MG (THERAPY START DECEMBER 2022 - 31/01/2023 IV CYCLE - 14/02/2023 V CYCLE - 03/03/2023 VI CYCL
     Route: 042
     Dates: start: 20230131, end: 20230303
  3. FLUOROURACIL [Suspect]
     Active Substance: FLUOROURACIL
     Dosage: 480 MG (480 MG (THERAPY START DECEMBER 2022 - 31/01/2023 IV CYCLE - 14/02/2023 V CYCLE - 03/03/2023
     Route: 042
     Dates: start: 20230131, end: 20230303
  4. BEVACIZUMAB [Suspect]
     Active Substance: BEVACIZUMAB
     Indication: Colon cancer
     Dosage: 300 MG (THERAPY START DECEMBER 2022 - 31/01/2023 IV CYCLE - 14/02/2023 V CYCLE - 03/03/2023 VI CYCLE
     Route: 042
     Dates: start: 20230131, end: 20230303
  5. LEVOLEUCOVORIN [Concomitant]
     Active Substance: LEVOLEUCOVORIN
     Dosage: 300 MG

REACTIONS (3)
  - Hyperaesthesia [Recovering/Resolving]
  - Palmar-plantar erythrodysaesthesia syndrome [Recovering/Resolving]
  - Erythema [Recovering/Resolving]

NARRATIVE: CASE EVENT DATE: 20230213
